FAERS Safety Report 17101330 (Version 3)
Quarter: 2019Q4

REPORT INFORMATION
  Report Type: Spontaneous
  Country: US (occurrence: US)
  Receive Date: 20191202
  Receipt Date: 20191216
  Transmission Date: 20200122
  Serious: Yes (Hospitalization, Other)
  Sender: FDA-Public Use
  Company Number: US-SA-2019SA332486

PATIENT
  Age: 64 Year
  Sex: Female

DRUGS (1)
  1. FABRAZYME [Suspect]
     Active Substance: AGALSIDASE BETA
     Indication: FABRY^S DISEASE
     Dosage: 60 MG EVERY 10 TO 21 DAYS
     Route: 042
     Dates: start: 20190109

REACTIONS (6)
  - Asthenia [Unknown]
  - Gait disturbance [Unknown]
  - Cerebral infarction [Unknown]
  - Cerebral artery embolism [Unknown]
  - Hemiparesis [Unknown]
  - Musculoskeletal disorder [Unknown]

NARRATIVE: CASE EVENT DATE: 20191120
